FAERS Safety Report 6841106-7 (Version None)
Quarter: 2010Q3

REPORT INFORMATION
  Report Type: 
  Country: None (occurrence: None)
  Receive Date: 20100714
  Receipt Date: 20070626
  Transmission Date: 20110219
  Serious: No
  Sender: FDA-Public Use
  Company Number: US-PFIZER INC-2007054284

PATIENT
  Sex: Male
  Weight: 102.27 kg

DRUGS (8)
  1. CHANTIX [Suspect]
     Indication: SMOKING CESSATION THERAPY
     Route: 048
     Dates: start: 20070601
  2. VALIUM [Concomitant]
     Route: 048
  3. NEFAZODONE HCL [Concomitant]
     Route: 048
  4. SEROQUEL [Concomitant]
     Route: 048
  5. NEXIUM [Concomitant]
     Route: 048
  6. METOPROLOL [Concomitant]
     Route: 048
  7. TRICOR [Concomitant]
     Route: 048
  8. CHOLESTEROL- AND TRIGLYCERIDE REDUCERS [Concomitant]
     Route: 048

REACTIONS (3)
  - DEPRESSED MOOD [None]
  - FATIGUE [None]
  - HYPERSOMNIA [None]
